FAERS Safety Report 7549390-1 (Version None)
Quarter: 2011Q2

REPORT INFORMATION
  Report Type: 
  Country: None (occurrence: None)
  Receive Date: 20110615
  Receipt Date: 20031202
  Transmission Date: 20111010
  Serious: Yes (Hospitalization, Disabling)
  Sender: FDA-Public Use
  Company Number: PHHO2003JP12885

PATIENT
  Sex: Male

DRUGS (3)
  1. AMLODIPINE [Concomitant]
     Dosage: 5 MG, QD
     Route: 048
     Dates: start: 20000830
  2. DIOVAN [Suspect]
     Indication: HYPERTENSION
     Dosage: 80 MG, QD
     Route: 048
     Dates: start: 20030416
  3. PURSENNID [Concomitant]
     Indication: CONSTIPATION
     Dosage: 12 MG, QD
     Route: 048
     Dates: start: 20010725

REACTIONS (3)
  - ACUTE MYOCARDIAL INFARCTION [None]
  - ARTERIAL STENOSIS [None]
  - CHEST PAIN [None]
